FAERS Safety Report 19876928 (Version 1)
Quarter: 2021Q3

REPORT INFORMATION
  Report Type: Spontaneous
  Country: DE (occurrence: DE)
  Receive Date: 20210924
  Receipt Date: 20210924
  Transmission Date: 20211014
  Serious: Yes (Other)
  Sender: FDA-Public Use
  Company Number: DE-TEVA-2021-DE-1955976

PATIENT
  Age: 1 Day
  Sex: Female

DRUGS (5)
  1. ESCITALOPRAM [Suspect]
     Active Substance: ESCITALOPRAM OXALATE
     Indication: ANXIETY DISORDER
     Dosage: 10 MILLIGRAM DAILY;
     Route: 064
     Dates: start: 20200111, end: 20201021
  2. METOPROLOLSUCCINAT [Suspect]
     Active Substance: METOPROLOL SUCCINATE
     Indication: HYPERTENSION
  3. METOPROLOLSUCCINAT [Suspect]
     Active Substance: METOPROLOL SUCCINATE
     Indication: TACHYCARDIA
     Dosage: 95 MILLIGRAM DAILY; ADDITIONAL INFO : 0. ? 40.4. GESTATIONAL WEEK
     Route: 064
     Dates: start: 20200111, end: 20201021
  4. IBUPROFEN 400 [Concomitant]
     Active Substance: IBUPROFEN
     Indication: HEADACHE
     Dosage: 400 [MG / D (IF NECESSARY)] , UNIT DOSE : 400 MG , ADDITIONAL INFO : 9. ? 28. GESTATIONAL WEEK
     Route: 064
  5. BUPRENORPHINE. [Suspect]
     Active Substance: BUPRENORPHINE
     Indication: DRUG DEPENDENCE
     Dosage: 8 MILLIGRAM DAILY; ADDITIONAL INFO : 0. ? 40.4. GESTATIONAL WEEK
     Route: 064
     Dates: start: 20200111, end: 20201021

REACTIONS (4)
  - Drug withdrawal syndrome neonatal [Recovered/Resolved]
  - Small for dates baby [Unknown]
  - Sepsis neonatal [Recovered/Resolved]
  - Foetal exposure during pregnancy [Unknown]

NARRATIVE: CASE EVENT DATE: 20200111
